FAERS Safety Report 12317267 (Version 1)
Quarter: 2016Q2

REPORT INFORMATION
  Report Type: Spontaneous
  Country: HR (occurrence: HR)
  Receive Date: 20160429
  Receipt Date: 20160429
  Transmission Date: 20160815
  Serious: Yes (Death, Other)
  Sender: FDA-Public Use
  Company Number: HR-AMGEN-HRVSP2016053760

PATIENT
  Age: 61 Year

DRUGS (1)
  1. VECTIBIX [Suspect]
     Active Substance: PANITUMUMAB
     Indication: K-RAS GENE MUTATION
     Dosage: UNK, WEEK 4, 8, 12, 16
     Route: 065

REACTIONS (2)
  - Ascites [Unknown]
  - Death [Fatal]

NARRATIVE: CASE EVENT DATE: 20140713
